FAERS Safety Report 24066629 (Version 4)
Quarter: 2024Q3

REPORT INFORMATION
  Report Type: Spontaneous
  Country: JP (occurrence: JP)
  Receive Date: 20240709
  Receipt Date: 20240903
  Transmission Date: 20241016
  Serious: Yes (Life-Threatening, Hospitalization, Disabling)
  Sender: ROCHE
  Company Number: JP-CHUGAI-2024021506AA

PATIENT
  Age: 71 Year
  Sex: Male
  Weight: 57.3 kg

DRUGS (2)
  1. TECENTRIQ [Suspect]
     Active Substance: ATEZOLIZUMAB
     Indication: Hepatocellular carcinoma
     Dosage: 1200 MILLIGRAM, ONCE/3WEEKS
     Route: 042
     Dates: start: 20240528, end: 20240528
  2. AVASTIN [Suspect]
     Active Substance: BEVACIZUMAB
     Indication: Hepatocellular carcinoma
     Dosage: 15 MILLIGRAM/KILOGRAM, ONCE/3WEEKS
     Route: 042
     Dates: start: 20240528, end: 20240528

REACTIONS (5)
  - Thrombocytopenia [Not Recovered/Not Resolved]
  - Infection [Unknown]
  - Rhabdomyolysis [Recovered/Resolved with Sequelae]
  - Acute kidney injury [Recovered/Resolved]
  - Cytokine release syndrome [Recovered/Resolved]

NARRATIVE: CASE EVENT DATE: 20240605
